FAERS Safety Report 9234508 (Version 2)
Quarter: 2013Q2

REPORT INFORMATION
  Report Type: Spontaneous
  Country: US (occurrence: US)
  Receive Date: 20130416
  Receipt Date: 20130505
  Transmission Date: 20140414
  Serious: Yes (Other)
  Sender: FDA-Public Use
  Company Number: US-B.I. PHARMACEUTICALS,INC./RIDGEFIELD-2013-BI-09576BP

PATIENT
  Age: 74 Year
  Sex: Male
  Weight: 72.57 kg

DRUGS (4)
  1. TRADJENTA [Suspect]
     Indication: TYPE 2 DIABETES MELLITUS
     Dosage: 5 MG
     Route: 048
     Dates: start: 20120915, end: 20121112
  2. SYNTHROID [Concomitant]
     Indication: HYPOTHYROIDISM
     Dosage: 0.05 MG
  3. ASPIRIN [Concomitant]
     Dosage: 81 MG
  4. LISINOPRIL [Concomitant]
     Indication: HYPERTENSION
     Dosage: 5 MG

REACTIONS (2)
  - Pancreatic carcinoma [Not Recovered/Not Resolved]
  - Constipation [Recovered/Resolved]
